FAERS Safety Report 5870964-8 (Version None)
Quarter: 2008Q3

REPORT INFORMATION
  Report Type: 
  Country: None (occurrence: None)
  Receive Date: 20080904
  Receipt Date: 20080825
  Transmission Date: 20090109
  Serious: Yes (Hospitalization)
  Sender: FDA-Public Use
  Company Number: IL-ABBOTT-08P-082-0472425-00

PATIENT
  Sex: Male

DRUGS (5)
  1. WARFARIN SODIUM [Suspect]
     Indication: DEEP VEIN THROMBOSIS
  2. WARFARIN SODIUM [Suspect]
  3. WARFARIN SODIUM [Suspect]
     Dosage: MAINTAIN INR 2.0-3.0
  4. WARFARIN SODIUM [Suspect]
  5. UNFRACTIONATED HEPARIN [Concomitant]
     Indication: DEEP VEIN THROMBOSIS
     Route: 058

REACTIONS (2)
  - PRIAPISM [None]
  - SKIN NECROSIS [None]
